FAERS Safety Report 5976395-4 (Version None)
Quarter: 2008Q4

REPORT INFORMATION
  Report Type: 
  Country: None (occurrence: None)
  Receive Date: 20081202
  Receipt Date: 20081126
  Transmission Date: 20090506
  Serious: Yes (Death, Life-Threatening)
  Sender: FDA-Public Use
  Company Number: JP-ABBOTT-08P-087-0483578-00

PATIENT
  Sex: Male
  Weight: 43 kg

DRUGS (17)
  1. CLARITHROMYCIN [Suspect]
     Indication: PNEUMONIA
     Route: 048
     Dates: start: 20081007, end: 20081014
  2. VORICONAZOLE [Suspect]
     Indication: PNEUMONIA
     Route: 042
     Dates: start: 20081007, end: 20081014
  3. FUROSEMIDE [Concomitant]
     Indication: CARDIAC FAILURE
     Route: 048
     Dates: start: 20081009, end: 20081014
  4. THEOPHYLLINE [Concomitant]
     Indication: ASTHMA
     Route: 048
     Dates: start: 20080110, end: 20081014
  5. THEOPHYLLINE [Concomitant]
     Indication: PNEUMONIA
  6. DOPAMINE HYDROCHLORIDE [Concomitant]
     Indication: CARDIAC FAILURE
     Route: 042
     Dates: start: 20081008, end: 20081017
  7. SULPERAZON [Concomitant]
     Indication: PNEUMONIA
     Route: 042
     Dates: start: 20081007, end: 20081017
  8. NEOPHAGEN C [Concomitant]
     Indication: LIVER DISORDER
     Route: 048
     Dates: start: 20081001, end: 20081014
  9. NEOPHAGEN C [Concomitant]
     Indication: PROPHYLAXIS
  10. URSODIOL [Concomitant]
     Indication: LIVER DISORDER
     Route: 048
     Dates: start: 20080708, end: 20081016
  11. URSODIOL [Concomitant]
     Indication: BILE OUTPUT ABNORMAL
  12. URSODIOL [Concomitant]
     Indication: PROPHYLAXIS
  13. NICORANDIL [Concomitant]
     Indication: ANGINA PECTORIS
     Route: 048
     Dates: start: 20080110, end: 20081016
  14. LAFUTIDINE [Concomitant]
     Indication: DRUG USE FOR UNKNOWN INDICATION
     Route: 048
     Dates: start: 20080708, end: 20081016
  15. ISOSORBIDE MONONITRATE [Concomitant]
     Indication: ANGINA PECTORIS
     Route: 048
     Dates: start: 20080110, end: 20081016
  16. TULOBUTEROL HYDROCHLORIDE [Concomitant]
     Indication: PNEUMONIA
     Route: 062
     Dates: start: 20080820, end: 20081017
  17. TULOBUTEROL HYDROCHLORIDE [Concomitant]
     Indication: DYSPNOEA

REACTIONS (6)
  - ELECTROCARDIOGRAM QT PROLONGED [None]
  - HYPOKALAEMIA [None]
  - PNEUMONIA [None]
  - RESPIRATORY FAILURE [None]
  - TORSADE DE POINTES [None]
  - VENTRICULAR FIBRILLATION [None]
